FAERS Safety Report 5256481-7 (Version None)
Quarter: 2007Q1

REPORT INFORMATION
  Report Type: 
  Country: None (occurrence: None)
  Receive Date: 20070306
  Receipt Date: 20070302
  Transmission Date: 20070707
  Serious: Yes (Hospitalization)
  Sender: FDA-Public Use
  Company Number: 2886

PATIENT
  Age: 21 Year
  Sex: Female

DRUGS (5)
  1. CLAVULIN [Suspect]
     Dosage: 500MG FOUR TIMES PER DAY
  2. ALPRAZOLAM [Concomitant]
     Dosage: .25MG THREE TIMES PER DAY
  3. NAPROXEN [Concomitant]
     Dosage: 500MG TWICE PER DAY
  4. SIBUTRAMINE [Concomitant]
  5. FLUNARIZINE [Concomitant]

REACTIONS (2)
  - OVERDOSE [None]
  - SOMNOLENCE [None]
